FAERS Safety Report 10283020 (Version 3)
Quarter: 2015Q2

REPORT INFORMATION
  Report Type: Spontaneous
  Country: IT (occurrence: IT)
  Receive Date: 20140708
  Receipt Date: 20150416
  Transmission Date: 20150821
  Serious: Yes (Hospitalization)
  Sender: FDA-Public Use
  Company Number: IT-ROCHE-1430975

PATIENT
  Age: 73 Year
  Sex: Female

DRUGS (1)
  1. ZELBORAF [Suspect]
     Active Substance: VEMURAFENIB
     Indication: METASTATIC MALIGNANT MELANOMA
     Dosage: RESTARTED
     Route: 048
     Dates: start: 20121220, end: 20130202

REACTIONS (6)
  - Arthralgia [Recovering/Resolving]
  - Atrial fibrillation [Recovering/Resolving]
  - Asthenia [Recovering/Resolving]
  - Synovitis [Recovering/Resolving]
  - Hyperpyrexia [Recovering/Resolving]
  - Vomiting [Recovering/Resolving]

NARRATIVE: CASE EVENT DATE: 20130108
